FAERS Safety Report 19586782 (Version 1)
Quarter: 2021Q3

REPORT INFORMATION
  Report Type: Spontaneous
  Country: CA (occurrence: CA)
  Receive Date: 20210721
  Receipt Date: 20210721
  Transmission Date: 20211014
  Serious: Yes (Hospitalization)
  Sender: FDA-Public Use
  Company Number: CA-ROCHE-2871771

PATIENT
  Age: 78 Year
  Sex: Male

DRUGS (5)
  1. QUETIAPINE. [Concomitant]
     Active Substance: QUETIAPINE
  2. PANTOPRAZOLE [Concomitant]
     Active Substance: PANTOPRAZOLE
     Route: 042
  3. RITUXAN [Suspect]
     Active Substance: RITUXIMAB
     Indication: NON-HODGKIN^S LYMPHOMA
     Route: 058
  4. BENDAMUSTINE [Suspect]
     Active Substance: BENDAMUSTINE
     Indication: NON-HODGKIN^S LYMPHOMA
     Route: 065
  5. TELMISARTAN. [Concomitant]
     Active Substance: TELMISARTAN

REACTIONS (8)
  - Bronchoscopy [Unknown]
  - General physical health deterioration [Unknown]
  - Biopsy [Unknown]
  - Lung opacity [Unknown]
  - Neutropenia [Unknown]
  - Bronchoalveolar lavage [Unknown]
  - Dyspnoea [Unknown]
  - Hypersensitivity pneumonitis [Unknown]
